FAERS Safety Report 5025549-2 (Version None)
Quarter: 2006Q2

REPORT INFORMATION
  Report Type: 
  Country: None (occurrence: None)
  Receive Date: 20060426
  Receipt Date: 20060205
  Transmission Date: 20061013
  Serious: No
  Sender: FDA-Public Use
  Company Number: 2006018276

PATIENT
  Sex: Female
  Weight: 68.0396 kg

DRUGS (4)
  1. LYRICA [Suspect]
     Indication: SCIATICA
     Dosage: 100 MG (50 MG, 2 IN 1 D)
  2. INSULIN [Concomitant]
  3. HYDROCODONE BITARTRATE [Concomitant]
  4. ALL OTHER THERAPEUTIC PRODUCTS (ALL OTHER THERAPEUTIC PRODUCTS) [Concomitant]

REACTIONS (2)
  - DIZZINESS [None]
  - PAIN [None]
